FAERS Safety Report 9436502 (Version 1)
Quarter: 2013Q3

REPORT INFORMATION
  Report Type: Other
  Country: US (occurrence: US)
  Receive Date: 20130802
  Receipt Date: 20130802
  Transmission Date: 20140515
  Serious: No
  Sender: FDA-Public Use
  Company Number: US-OPTIMER-20120189

PATIENT
  Sex: 0

DRUGS (2)
  1. DIFICID [Suspect]
     Indication: CLOSTRIDIAL INFECTION
     Dosage: 200 MG, BID
     Route: 050
  2. DIFLUCAN [Suspect]
     Dosage: 200 MG, SINGLE
     Route: 050

REACTIONS (2)
  - Medication error [Unknown]
  - Drug dispensing error [Unknown]
